FAERS Safety Report 8796792 (Version 1)
Quarter: 2012Q4

REPORT INFORMATION
  Report Type: 
  Country: US (occurrence: US)
  Receive Date: 20120917
  Receipt Date: 20120917
  Transmission Date: 20130627
  Serious: Yes (Hospitalization)
  Sender: FDA-Public Use
  Company Number: US-JNJFOC-20120904083

PATIENT
  Sex: Female

DRUGS (1)
  1. SANDOZ FENTANYL TRANSDERMAL SYSTEM [Suspect]
     Indication: FIBROMYALGIA
     Route: 062

REACTIONS (6)
  - Hip fracture [Recovered/Resolved]
  - Fall [Recovered/Resolved]
  - Device expulsion [Recovered/Resolved]
  - Wrong technique in drug usage process [Recovered/Resolved]
  - Poor quality drug administered [Recovered/Resolved]
  - Wrong technique in drug usage process [Recovered/Resolved]
